FAERS Safety Report 9808225 (Version 2)
Quarter: 2014Q1

REPORT INFORMATION
  Report Type: Spontaneous
  Country: IT (occurrence: IT)
  Receive Date: 20140110
  Receipt Date: 20140110
  Transmission Date: 20141002
  Serious: Yes (Other)
  Sender: FDA-Public Use
  Company Number: IT-ASTRAZENECA-2013SE92412

PATIENT
  Age: 20183 Day
  Sex: Male
  Weight: 80 kg

DRUGS (3)
  1. OMEPRAZOLE [Suspect]
     Indication: PROPHYLAXIS AGAINST GASTROINTESTINAL ULCER
     Route: 048
     Dates: start: 20130313
  2. GABAPENTIN [Interacting]
     Indication: SCIATICA
     Route: 048
     Dates: start: 20130322
  3. KETOROLAC [Interacting]
     Indication: LUMBAR SPINAL STENOSIS
     Route: 065
     Dates: start: 20130410, end: 20130413

REACTIONS (3)
  - Drug interaction [Unknown]
  - Angioedema [Recovered/Resolved]
  - Urticaria [Recovered/Resolved]
